FAERS Safety Report 7170602-0 (Version None)
Quarter: 2010Q4

REPORT INFORMATION
  Report Type: 
  Country: None (occurrence: None)
  Receive Date: 20101217
  Receipt Date: 20101214
  Transmission Date: 20110411
  Serious: Yes (Death, Hospitalization)
  Sender: FDA-Public Use
  Company Number: A0866187A

PATIENT
  Sex: Female

DRUGS (2)
  1. DIGOXIN [Suspect]
  2. BLINDED TRIAL MEDICATION [Concomitant]
     Indication: THROMBOSIS PROPHYLAXIS
     Route: 048
     Dates: start: 20071120, end: 20100102

REACTIONS (5)
  - DYSURIA [None]
  - FATIGUE [None]
  - RENAL FAILURE ACUTE [None]
  - THERAPEUTIC AGENT TOXICITY [None]
  - VISUAL IMPAIRMENT [None]
